FAERS Safety Report 16984889 (Version 1)
Quarter: 2019Q4

REPORT INFORMATION
  Report Type: Spontaneous
  Country: US (occurrence: US)
  Receive Date: 20190917
  Receipt Date: 20190917
  Transmission Date: 20200122
  Serious: Yes (Hospitalization)
  Sender: FDA-Public Use
  Company Number: None

PATIENT
  Age: 35 Year
  Sex: Male

DRUGS (1)
  1. BUPROPION. [Suspect]
     Active Substance: BUPROPION
     Indication: DEPRESSION
     Dates: start: 20140123, end: 20140123

REACTIONS (3)
  - Myalgia [None]
  - Blood creatinine increased [None]
  - Blood urea increased [None]

NARRATIVE: CASE EVENT DATE: 20140123
